FAERS Safety Report 15996494 (Version 2)
Quarter: 2019Q1

REPORT INFORMATION
  Report Type: Spontaneous
  Country: FR (occurrence: FR)
  Receive Date: 20190222
  Receipt Date: 20190226
  Transmission Date: 20190418
  Serious: Yes (Other)
  Sender: FDA-Public Use
  Company Number: PHHY2017FR169177

PATIENT
  Sex: Female

DRUGS (1)
  1. DUOTRAV APS [Suspect]
     Active Substance: TIMOLOL MALEATE\TRAVOPROST
     Indication: GLAUCOMA
     Dosage: 1 GTT, QD
     Route: 047
     Dates: start: 1999

REACTIONS (13)
  - Concomitant disease aggravated [Not Recovered/Not Resolved]
  - Glaucoma [Unknown]
  - Eye irritation [Not Recovered/Not Resolved]
  - Vision blurred [Unknown]
  - Eye pruritus [Not Recovered/Not Resolved]
  - Corneal dystrophy [Not Recovered/Not Resolved]
  - Lacrimation increased [Not Recovered/Not Resolved]
  - Dizziness [Unknown]
  - Injury corneal [Not Recovered/Not Resolved]
  - Eye pain [Unknown]
  - Keratitis [Unknown]
  - Visual acuity reduced [Not Recovered/Not Resolved]
  - Tension headache [Unknown]
